FAERS Safety Report 16449211 (Version 4)
Quarter: 2019Q2

REPORT INFORMATION
  Report Type: Report from Study
  Country: None (occurrence: CH)
  Receive Date: 20190619
  Receipt Date: 20190624
  Transmission Date: 20190711
  Serious: Yes (Death)
  Sender: FDA-Public Use
  Company Number: CH-ABBVIE-19S-151-2823805-00

PATIENT
  Age: 71 Year
  Sex: Male

DRUGS (4)
  1. LEPONEX [Concomitant]
     Active Substance: CLOZAPINE
     Indication: PRODUCT USED FOR UNKNOWN INDICATION
     Dosage: 1.5 TABLETS IN THE EVENING
  2. DUODOPA [Suspect]
     Active Substance: CARBIDOPA\LEVODOPA
     Dosage: 16 H THERAPY. MORNING DOSE 5 ML, CONTINUOUS RATE DAY 2.5 ML/H, EXTRA DOSE 1 ML
     Route: 050
     Dates: start: 20190208, end: 20190614
  3. DUODOPA [Suspect]
     Active Substance: CARBIDOPA\LEVODOPA
     Indication: PARKINSON^S DISEASE
     Dosage: STRENGTH (CMP): 20 MG/ML 5 MG/ML
     Route: 050
     Dates: start: 20190204, end: 20190208
  4. DUODOPA [Suspect]
     Active Substance: CARBIDOPA\LEVODOPA
     Dosage: STRENGTH (CMP): 20 MG/ML 5 MG/ML  ALL VALUES 0 16 H THERAPY 1 CASSETTE PER DAY
     Route: 050
     Dates: start: 20190614

REACTIONS (4)
  - Hallucination [Recovered/Resolved]
  - Sudden cardiac death [Fatal]
  - Myocardial infarction [Fatal]
  - Malaise [Unknown]

NARRATIVE: CASE EVENT DATE: 201906
